FAERS Safety Report 7904566-6 (Version None)
Quarter: 2011Q4

REPORT INFORMATION
  Report Type: 
  Country: None (occurrence: None)
  Receive Date: 20111109
  Receipt Date: 20111103
  Transmission Date: 20120403
  Serious: Yes (Hospitalization)
  Sender: FDA-Public Use
  Company Number: US-B.I. PHARMACEUTICALS,INC./RIDGEFIELD-2011-BP-08544BP

PATIENT
  Sex: Female

DRUGS (19)
  1. AZOPT [Concomitant]
     Indication: EYE DISORDER
  2. LEVOTHYROXINE SODIUM [Concomitant]
     Indication: HYPOTHYROIDISM
     Dosage: 0.25 MCG
     Route: 048
  3. POTASSIUM [Concomitant]
     Indication: SUPPLEMENTATION THERAPY
     Route: 048
  4. IPROTROPIUM [Concomitant]
     Indication: RHINORRHOEA
  5. VIT B6 [Concomitant]
     Indication: SUPPLEMENTATION THERAPY
  6. AZOPT [Concomitant]
     Indication: GLAUCOMA
     Route: 031
     Dates: start: 20090101
  7. FUROSEMIDE [Concomitant]
     Indication: OEDEMA PERIPHERAL
     Route: 048
  8. PANTOPRAZOLE [Concomitant]
     Dosage: 40 MG
     Route: 048
  9. ZOLPIDEM [Concomitant]
     Indication: SLEEP DISORDER
  10. CENTRUM SILVER [Concomitant]
     Indication: SUPPLEMENTATION THERAPY
  11. TOPROL-XL [Concomitant]
     Indication: HYPERTENSION
     Dosage: 75 MG
     Route: 048
     Dates: start: 20070101
  12. FLOVENT [Concomitant]
     Indication: CHRONIC OBSTRUCTIVE PULMONARY DISEASE
     Route: 055
     Dates: start: 20090101
  13. DOXAZOSIN MESYLATE [Concomitant]
     Indication: HYPERTENSION
     Dosage: 4 MG
     Route: 048
     Dates: start: 20080101
  14. CALCIUM [Concomitant]
     Indication: SUPPLEMENTATION THERAPY
  15. FUROSEMIDE [Concomitant]
     Route: 048
  16. PRADAXA [Suspect]
     Indication: ATRIAL FIBRILLATION
     Dosage: 300 MG
     Route: 048
  17. MICARDIS [Concomitant]
     Indication: HYPERTENSION
     Dosage: 50 MG
     Route: 048
     Dates: start: 20070101
  18. MICARDIS [Concomitant]
     Indication: CARDIAC DISORDER
  19. XALATAN [Concomitant]
     Indication: EYE DISORDER

REACTIONS (7)
  - CELLULITIS [None]
  - OEDEMA PERIPHERAL [None]
  - DYSPNOEA [None]
  - HAEMATOCHEZIA [None]
  - HAEMORRHAGE SUBCUTANEOUS [None]
  - DYSPEPSIA [None]
  - INAPPROPRIATE SCHEDULE OF DRUG ADMINISTRATION [None]
